FAERS Safety Report 6899857-4 (Version None)
Quarter: 2010Q3

REPORT INFORMATION
  Report Type: 
  Country: None (occurrence: None)
  Receive Date: 20100803
  Receipt Date: 20100721
  Transmission Date: 20110219
  Serious: Yes (Hospitalization)
  Sender: FDA-Public Use
  Company Number: US-ELI_LILLY_AND_COMPANY-US201006006875

PATIENT
  Sex: Male

DRUGS (14)
  1. FORTEO [Suspect]
     Indication: OSTEOPOROSIS
     Dosage: 20 UG, DAILY (1/D)
     Dates: start: 20100425, end: 20100619
  2. FORTEO [Suspect]
     Dosage: 20 UG, DAILY (1/D)
  3. COUMADIN [Concomitant]
  4. VITAMIN D [Concomitant]
     Dosage: 50000 U, WEEKLY (1/W)
  5. ZOCOR [Concomitant]
     Dosage: 40 MG, EACH MORNING
  6. ZOCOR [Concomitant]
     Dosage: 20 MG, EACH EVENING
  7. LANOXIN [Concomitant]
  8. TENORMIN [Concomitant]
  9. LISINOPRIL [Concomitant]
  10. CARDURA [Concomitant]
  11. ASPIRIN [Concomitant]
  12. RITALIN [Concomitant]
  13. TYLENOL (CAPLET) [Concomitant]
     Dosage: 1 D/F, AS NEEDED
  14. AMBIEN [Concomitant]

REACTIONS (2)
  - BLOOD TEST ABNORMAL [None]
  - PROSTATE CANCER [None]
